FAERS Safety Report 6160253-9 (Version None)
Quarter: 2009Q2

REPORT INFORMATION
  Report Type: 
  Country: None (occurrence: None)
  Receive Date: 20090420
  Receipt Date: 20090406
  Transmission Date: 20091009
  Serious: Yes (Life-Threatening, Hospitalization)
  Sender: FDA-Public Use
  Company Number: B0570205A

PATIENT
  Age: 8 Year
  Sex: Female

DRUGS (2)
  1. ALBENDAZOLE [Suspect]
     Indication: DRUG USE FOR UNKNOWN INDICATION
     Route: 065
     Dates: start: 20081201
  2. MECTIZAN [Suspect]
     Indication: DRUG USE FOR UNKNOWN INDICATION
     Route: 065
     Dates: start: 20081201

REACTIONS (12)
  - ANOREXIA [None]
  - CHEILITIS [None]
  - CONDITION AGGRAVATED [None]
  - DERMATITIS BULLOUS [None]
  - EYE DISCHARGE [None]
  - EYE HAEMORRHAGE [None]
  - EYE SWELLING [None]
  - FOREIGN BODY SENSATION IN EYES [None]
  - LIP ULCERATION [None]
  - RASH GENERALISED [None]
  - SWELLING FACE [None]
  - TOXIC EPIDERMAL NECROLYSIS [None]
